FAERS Safety Report 13683845 (Version 11)
Quarter: 2019Q2

REPORT INFORMATION
  Report Type: Report from Study
  Country: US (occurrence: US)
  Receive Date: 20170623
  Receipt Date: 20190412
  Transmission Date: 20190711
  Serious: Yes (Other)
  Sender: FDA-Public Use
  Company Number: PHEH2017US019005

PATIENT
  Sex: Male

DRUGS (2)
  1. AFINITOR [Suspect]
     Active Substance: EVEROLIMUS
     Dosage: 5 MG, QD
     Route: 048
  2. AFINITOR [Suspect]
     Active Substance: EVEROLIMUS
     Indication: ANGIOMYOLIPOMA
     Dosage: 10 MG, QD
     Route: 048
     Dates: start: 20170616

REACTIONS (18)
  - Renal impairment [Unknown]
  - Blood cholesterol increased [Unknown]
  - Dyspepsia [Unknown]
  - Blood sodium decreased [Unknown]
  - Stomatitis [Unknown]
  - Hypersomnia [Unknown]
  - Swelling [Unknown]
  - Wrong technique in product usage process [Unknown]
  - Oral pain [Unknown]
  - Fatigue [Unknown]
  - Sinusitis [Unknown]
  - Toothache [Unknown]
  - Dehydration [Unknown]
  - Seizure [Unknown]
  - Diarrhoea [Unknown]
  - Hyperventilation [Unknown]
  - Dyspnoea [Unknown]
  - Product administration error [Unknown]
